FAERS Safety Report 8328084-9 (Version None)
Quarter: 2012Q2

REPORT INFORMATION
  Report Type: 
  Country: None (occurrence: None)
  Receive Date: 20120502
  Receipt Date: 20120423
  Transmission Date: 20120825
  Serious: Yes (Hospitalization)
  Sender: FDA-Public Use
  Company Number: PHHY2012BR035827

PATIENT
  Sex: Female
  Weight: 68.7 kg

DRUGS (12)
  1. APRESOLINE [Concomitant]
     Dosage: 25 MG, UNK
  2. MORPHINE SULFATE [Concomitant]
     Dosage: 100 MG/ML, UNK
     Route: 048
  3. BISACODYL [Concomitant]
     Dosage: 5 MG, UNK
  4. OMEPRAZOLE [Concomitant]
     Dosage: 40 MG, UNK
  5. LEVOTHYROXINE SODIUM [Concomitant]
     Dosage: 100 MG, UNK
  6. TEGRETOL [Suspect]
     Dosage: 100 MG, AT 10 AM AND 10 PM
     Dates: start: 20120410
  7. ALDACTONE [Concomitant]
     Dosage: 25 MG, UNK
  8. CLONAZEPAM [Concomitant]
     Dosage: 2.5 MG/ML, UNK
  9. SERTRALINE HYDROCHLORIDE [Concomitant]
     Dosage: 50 MG, UNK
  10. LUFTAL [Concomitant]
     Dosage: 75 MG/ML, UNK
  11. ASPIRIN [Concomitant]
     Dosage: 100 MG, UNK
  12. LASIX [Concomitant]
     Dosage: 40 MG, UNK

REACTIONS (4)
  - PRURITUS [None]
  - URINARY TRACT INFECTION [None]
  - SKIN REACTION [None]
  - SKIN LESION [None]
